FAERS Safety Report 8386428-6 (Version None)
Quarter: 2012Q2

REPORT INFORMATION
  Report Type: 
  Country: None (occurrence: None)
  Receive Date: 20120525
  Receipt Date: 20120517
  Transmission Date: 20120825
  Serious: Yes (Other)
  Sender: FDA-Public Use
  Company Number: CN-PFIZER INC-2012076536

PATIENT
  Age: 65 Year
  Sex: Female
  Weight: 72 kg

DRUGS (2)
  1. AXITINIB [Suspect]
     Dosage: 5 MG, 2X/DAY
     Route: 048
     Dates: start: 20110704, end: 20120214
  2. AXITINIB [Suspect]
     Indication: METASTATIC RENAL CELL CARCINOMA
     Dosage: 5 MG, 2X/DAY
     Route: 048
     Dates: start: 20100208, end: 20110629

REACTIONS (1)
  - CEREBRAL ISCHAEMIA [None]
